FAERS Safety Report 4728650-3 (Version None)
Quarter: 2005Q3

REPORT INFORMATION
  Report Type: 
  Country: None (occurrence: None)
  Receive Date: 20050721
  Receipt Date: 20050504
  Transmission Date: 20060218
  Serious: No
  Sender: FDA-Public Use
  Company Number: 2005SP000570

PATIENT
  Age: 78 Year
  Sex: Female

DRUGS (22)
  1. LUNESTA [Suspect]
     Dosage: 1 MG; HS; ORAL
     Route: 048
     Dates: start: 20050502
  2. AMBIEN [Concomitant]
  3. XANAX [Concomitant]
  4. PROPAFENONE [Concomitant]
  5. HYDROCHLORIDE [Concomitant]
  6. HYDROCHLOROTHIAZIDE [Concomitant]
  7. DIOVAN [Concomitant]
  8. ACIPHEX [Concomitant]
  9. ASCORBIC ACID [Concomitant]
  10. MULTI-VITAMINS [Concomitant]
  11. FOLIC ACID [Concomitant]
  12. CALCIUM GLUCONATE [Concomitant]
  13. GLUCOSAMINE HYDROCHLORIDE [Concomitant]
  14. LUTEIN [Concomitant]
  15. ZETIA [Concomitant]
  16. LESCHOL [Concomitant]
  17. COUMADIN [Concomitant]
  18. DIGOXIN [Concomitant]
  19. AMLODIPINE [Concomitant]
  20. TYLENOL [Concomitant]
  21. FOSAMAX [Concomitant]
  22. LEVSIN [Concomitant]

REACTIONS (2)
  - DRUG INEFFECTIVE [None]
  - INSOMNIA [None]
